FAERS Safety Report 7230886-7 (Version None)
Quarter: 2011Q1

REPORT INFORMATION
  Report Type: 
  Country: None (occurrence: None)
  Receive Date: 20110118
  Receipt Date: 20110113
  Transmission Date: 20110831
  Serious: Yes (Death, Hospitalization)
  Sender: FDA-Public Use
  Company Number: US-JNJFOC-20110103584

PATIENT
  Sex: Male
  Weight: 77.11 kg

DRUGS (1)
  1. HALDOL [Suspect]
     Indication: ILL-DEFINED DISORDER
     Route: 065

REACTIONS (2)
  - GALLBLADDER OBSTRUCTION [None]
  - PANCREATIC DUCT OBSTRUCTION [None]
